FAERS Safety Report 24937459 (Version 1)
Quarter: 2025Q1

REPORT INFORMATION
  Report Type: Spontaneous
  Country: US (occurrence: None)
  Receive Date: 20250206
  Receipt Date: 20250206
  Transmission Date: 20250409
  Serious: No
  Sender: FDA-CTU
  Company Number: None

PATIENT
  Age: 34 Year
  Sex: Male

DRUGS (4)
  1. TIRZEPATIDE [Suspect]
     Active Substance: TIRZEPATIDE
     Indication: Obesity
     Route: 058
     Dates: start: 20240914
  2. RAMIPRIL [Concomitant]
     Active Substance: RAMIPRIL
  3. ZEPBOUND [Concomitant]
     Active Substance: TIRZEPATIDE
  4. IMODIUM [Concomitant]
     Active Substance: LOPERAMIDE HYDROCHLORIDE

REACTIONS (3)
  - Dyspepsia [None]
  - Flatulence [None]
  - Eructation [None]

NARRATIVE: CASE EVENT DATE: 20250205
